FAERS Safety Report 9709677 (Version 4)
Quarter: 2013Q4

REPORT INFORMATION
  Report Type: Report from Study
  Country: PE (occurrence: PE)
  Receive Date: 20131126
  Receipt Date: 20131226
  Transmission Date: 20140711
  Serious: Yes (Hospitalization, Other)
  Sender: FDA-Public Use
  Company Number: PE-JNJFOC-20131114534

PATIENT
  Age: 0 Day
  Sex: Male
  Weight: 1.9 kg

DRUGS (7)
  1. TMC125 [Suspect]
     Indication: HIV INFECTION
     Route: 064
     Dates: start: 20121108, end: 20130531
  2. TENVIR [Suspect]
     Indication: HIV INFECTION
     Route: 064
     Dates: start: 20121108
  3. RITOLOP [Suspect]
     Indication: HIV INFECTION
     Dosage: 400/100 MG
     Route: 064
     Dates: start: 20120531
  4. GLIBENCAR [Suspect]
     Indication: HIV INFECTION
     Route: 064
     Dates: start: 20121108
  5. NIFEDIPINE [Suspect]
     Indication: COMPLICATION OF PREGNANCY
     Route: 064
     Dates: start: 20131109, end: 20131110
  6. BETAMETHASONE [Suspect]
     Indication: COMPLICATION OF PREGNANCY
     Route: 064
     Dates: start: 20131109, end: 20131110
  7. XYLOCAINE [Suspect]
     Indication: ANAESTHESIA
     Route: 064
     Dates: start: 20131110, end: 20131110

REACTIONS (3)
  - Premature baby [Not Recovered/Not Resolved]
  - Neonatal respiratory distress syndrome [Recovered/Resolved]
  - Foetal exposure during pregnancy [Recovered/Resolved]
